FAERS Safety Report 18504209 (Version 1)
Quarter: 2020Q4

REPORT INFORMATION
  Report Type: Spontaneous
  Country: US (occurrence: US)
  Receive Date: 20201114
  Receipt Date: 20201114
  Transmission Date: 20210114
  Serious: Yes (Hospitalization, Other)
  Sender: FDA-Public Use
  Company Number: US-MACLEODS PHARMACEUTICALS US LTD-MAC2020029097

PATIENT

DRUGS (11)
  1. QUETIAPINE 50 MG [Suspect]
     Active Substance: QUETIAPINE
     Indication: MAJOR DEPRESSION
  2. SERTRALINE [Concomitant]
     Active Substance: SERTRALINE HYDROCHLORIDE
     Indication: POST-TRAUMATIC STRESS DISORDER
     Dosage: 100 MILLIGRAM, BID (12 HOUR)
     Route: 048
  3. GUANFACINE. [Concomitant]
     Active Substance: GUANFACINE
     Indication: MAJOR DEPRESSION
  4. QUETIAPINE 50 MG [Suspect]
     Active Substance: QUETIAPINE
     Indication: POST-TRAUMATIC STRESS DISORDER
     Dosage: 50 MILLIGRAM, QD EVERY BEDTIME
     Route: 048
  5. ARIPIPRAZOLE. [Suspect]
     Active Substance: ARIPIPRAZOLE
     Indication: MAJOR DEPRESSION
     Dosage: 5 MILLIGRAM, QD EVERY BEDTIME
     Route: 048
  6. GUANFACINE. [Concomitant]
     Active Substance: GUANFACINE
     Indication: POST-TRAUMATIC STRESS DISORDER
     Dosage: 1 MILLIGRAM, QD AT BEDTIME (Q.H.S.)
     Route: 048
  7. FLUOXETINE [Concomitant]
     Active Substance: FLUOXETINE HYDROCHLORIDE
     Indication: POST-TRAUMATIC STRESS DISORDER
     Dosage: 60 MILLIGRAM, QD EVERY DAY BEFORE NOON
     Route: 048
  8. TRAZODONE [Concomitant]
     Active Substance: TRAZODONE HYDROCHLORIDE
     Indication: INSOMNIA
     Dosage: 50 MILLIGRAM, PRN AT BEDTIME
     Route: 048
  9. ARIPIPRAZOLE. [Suspect]
     Active Substance: ARIPIPRAZOLE
     Indication: POST-TRAUMATIC STRESS DISORDER
     Dosage: 2 MILLIGRAM, QD EVERY BEDTIME
     Route: 048
  10. SERTRALINE [Concomitant]
     Active Substance: SERTRALINE HYDROCHLORIDE
     Indication: MAJOR DEPRESSION
  11. FLUOXETINE [Concomitant]
     Active Substance: FLUOXETINE HYDROCHLORIDE
     Indication: MAJOR DEPRESSION

REACTIONS (2)
  - Sedation [Unknown]
  - Drug ineffective [Unknown]
